FAERS Safety Report 4773950-4 (Version None)
Quarter: 2005Q3

REPORT INFORMATION
  Report Type: 
  Country: None (occurrence: None)
  Receive Date: 20050920
  Receipt Date: 20050816
  Transmission Date: 20060218
  Serious: Yes (Hospitalization)
  Sender: FDA-Public Use
  Company Number: 200512738FR

PATIENT
  Age: 39 Year
  Sex: Male
  Weight: 42 kg

DRUGS (6)
  1. PIRILENE [Suspect]
     Indication: PULMONARY TUBERCULOSIS
     Route: 048
     Dates: start: 20050720, end: 20050723
  2. RIFATER [Suspect]
     Indication: PULMONARY TUBERCULOSIS
     Route: 048
     Dates: start: 20050723, end: 20050725
  3. RIFADIN [Suspect]
     Indication: PULMONARY TUBERCULOSIS
     Route: 048
     Dates: start: 20050720, end: 20050723
  4. RIMIFON [Suspect]
     Indication: PULMONARY TUBERCULOSIS
     Route: 048
     Dates: start: 20050720, end: 20050723
  5. MYAMBUTOL [Concomitant]
     Route: 048
     Dates: start: 20050720, end: 20050725
  6. VITAMIN B1 AND B6 [Concomitant]

REACTIONS (3)
  - COAGULATION FACTOR V LEVEL DECREASED [None]
  - CYTOLYTIC HEPATITIS [None]
  - HEPATIC FAILURE [None]
